FAERS Safety Report 25136617 (Version 1)
Quarter: 2025Q1

REPORT INFORMATION
  Report Type: Spontaneous
  Country: US (occurrence: None)
  Receive Date: 20250328
  Receipt Date: 20250328
  Transmission Date: 20250408
  Serious: Yes (Hospitalization)
  Sender: FDA-CTU
  Company Number: None

PATIENT
  Age: 51 Year
  Sex: Male
  Weight: 88 kg

DRUGS (2)
  1. TOPIRAMATE [Suspect]
     Active Substance: TOPIRAMATE
     Indication: Alcohol use
     Dosage: 100.00 MG TRWICE  DAY ORAL ?
     Route: 048
  2. CHLORDIAZEPOXIDE HYDROCHLORIDE [Suspect]
     Active Substance: CHLORDIAZEPOXIDE HYDROCHLORIDE
     Dosage: 50.00 MG 4 TIMES A DAY ORAL?
     Route: 048

REACTIONS (4)
  - Vision blurred [None]
  - Confusional state [None]
  - Hallucination [None]
  - Parkinsonism [None]

NARRATIVE: CASE EVENT DATE: 20250131
